FAERS Safety Report 8406181-7 (Version None)
Quarter: 2012Q2

REPORT INFORMATION
  Report Type: 
  Country: None (occurrence: None)
  Receive Date: 20120604
  Receipt Date: 20120529
  Transmission Date: 20120825
  Serious: Yes (Hospitalization)
  Sender: FDA-Public Use
  Company Number: US-BAYER-2012-053406

PATIENT
  Age: 18 Year
  Sex: Female
  Weight: 73 kg

DRUGS (7)
  1. YASMIN [Suspect]
     Indication: ACNE
  2. FIORICET [Concomitant]
  3. IBUPROFEN (ADVIL) [Concomitant]
  4. ACETAZOLAMIDE [Concomitant]
  5. YAZ [Suspect]
  6. ZOFRAN [Concomitant]
  7. REGLAN [Concomitant]

REACTIONS (3)
  - INTRACRANIAL VENOUS SINUS THROMBOSIS [None]
  - VASCULITIS CEREBRAL [None]
  - CEREBROVASCULAR ACCIDENT [None]
